FAERS Safety Report 12759248 (Version 5)
Quarter: 2016Q4

REPORT INFORMATION
  Report Type: Spontaneous
  Country: JP (occurrence: JP)
  Receive Date: 20160919
  Receipt Date: 20161028
  Transmission Date: 20170207
  Serious: Yes (Death, Life-Threatening, Hospitalization)
  Sender: FDA-Public Use
  Company Number: JP-SA-2016SA169004

PATIENT
  Age: 65 Year
  Sex: Male
  Weight: 69.5 kg

DRUGS (7)
  1. PREDONINE [Concomitant]
     Active Substance: PREDNISOLONE\PREDNISOLONE ACETATE\PREDNISOLONE SODIUM SUCCINATE
     Indication: SUPPLEMENTATION THERAPY
     Route: 048
     Dates: start: 20160804
  2. ZANTAC [Concomitant]
     Active Substance: RANITIDINE HYDROCHLORIDE
     Route: 065
  3. JEVTANA [Suspect]
     Active Substance: CABAZITAXEL
     Indication: PROSTATE CANCER
     Route: 042
     Dates: start: 20160901, end: 20160901
  4. G-LASTA [Concomitant]
     Active Substance: PEGFILGRASTIM
     Route: 065
     Dates: start: 20160902, end: 20160902
  5. DOCETAXEL. [Concomitant]
     Active Substance: DOCETAXEL
     Indication: PROSTATE CANCER
     Route: 065
     Dates: start: 20160420, end: 20160804
  6. NEORESTAR [Concomitant]
     Route: 065
  7. DEXART [Concomitant]
     Active Substance: DEXAMETHASONE SODIUM PHOSPHATE
     Route: 065

REACTIONS (4)
  - Cardio-respiratory arrest [Fatal]
  - Malaise [Not Recovered/Not Resolved]
  - Pneumonia klebsiella [Unknown]
  - Altered state of consciousness [Fatal]

NARRATIVE: CASE EVENT DATE: 20160905
